FAERS Safety Report 8814093 (Version 1)
Quarter: 2012Q4

REPORT INFORMATION
  Report Type: Spontaneous
  Country: SK (occurrence: None)
  Receive Date: 20120925
  Receipt Date: 20120925
  Transmission Date: 20130627
  Serious: Yes (Other)
  Sender: FDA-Public Use
  Company Number: UTC-023260

PATIENT
  Age: 78 Year
  Sex: Female
  Weight: 52 kg

DRUGS (2)
  1. REMODULIN [Suspect]
     Indication: PULMONARY HYPERTENSION
     Route: 058
     Dates: start: 20120719
  2. REMODULIN [Suspect]
     Indication: PULMONARY HYPERTENSION
     Dosage: 0.0224 ugkg, 1 in 1 min

REACTIONS (1)
  - Dermatitis [None]
